APPROVED DRUG PRODUCT: ANDRODERM
Active Ingredient: TESTOSTERONE
Strength: 4MG/24HR **Federal Register determination that product was not discontinued or withdrawn for safety or effectiveness reasons**
Dosage Form/Route: FILM, EXTENDED RELEASE;TRANSDERMAL
Application: N020489 | Product #004
Applicant: ABBVIE INC
Approved: Oct 20, 2011 | RLD: Yes | RS: No | Type: DISCN